FAERS Safety Report 6446085-2 (Version None)
Quarter: 2009Q4

REPORT INFORMATION
  Report Type: 
  Country: None (occurrence: None)
  Receive Date: 20091119
  Receipt Date: 20091110
  Transmission Date: 20100525
  Serious: Yes (Other)
  Sender: FDA-Public Use
  Company Number: US-JNJFOC-20091104013

PATIENT
  Age: 15 Year

DRUGS (1)
  1. EXTRA STRENGTH TYLENOL [Suspect]
     Indication: PAIN

REACTIONS (2)
  - INTENTIONAL OVERDOSE [None]
  - VOMITING [None]
